FAERS Safety Report 12274855 (Version 2)
Quarter: 2017Q2

REPORT INFORMATION
  Report Type: Spontaneous
  Country: US (occurrence: US)
  Receive Date: 20160415
  Receipt Date: 20170418
  Transmission Date: 20170830
  Serious: No
  Sender: FDA-Public Use
  Company Number: US-ALLERGAN-1625183US

PATIENT
  Age: 53 Year
  Sex: Female
  Weight: 54.42 kg

DRUGS (2)
  1. LATISSE [Suspect]
     Active Substance: BIMATOPROST
     Indication: GROWTH OF EYELASHES
     Dosage: UNK, QD
     Dates: start: 201412
  2. LATISSE [Suspect]
     Active Substance: BIMATOPROST
     Indication: HYPOTRICHOSIS
     Dosage: 2 GTT, QHS
     Route: 061
     Dates: start: 201507

REACTIONS (2)
  - Inappropriate schedule of drug administration [Unknown]
  - Madarosis [Not Recovered/Not Resolved]

NARRATIVE: CASE EVENT DATE: 201512
